FAERS Safety Report 5687851-0 (Version None)
Quarter: 2008Q1

REPORT INFORMATION
  Report Type: 
  Country: None (occurrence: None)
  Receive Date: 20080328
  Receipt Date: 20080320
  Transmission Date: 20080703
  Serious: Yes (Other)
  Sender: FDA-Public Use
  Company Number: CA-BAYER-200817727NA

PATIENT
  Sex: Female

DRUGS (1)
  1. MIRENA [Suspect]
     Route: 015
     Dates: start: 20080101

REACTIONS (5)
  - ANGER [None]
  - FATIGUE [None]
  - FEAR [None]
  - PALPITATIONS [None]
  - VAGINAL HAEMORRHAGE [None]
